FAERS Safety Report 8371421-X (Version None)
Quarter: 2012Q2

REPORT INFORMATION
  Report Type: 
  Country: None (occurrence: None)
  Receive Date: 20120518
  Receipt Date: 20120509
  Transmission Date: 20120825
  Serious: Yes (Other)
  Sender: FDA-Public Use
  Company Number: US-ASTRAZENECA-2011SE36955

PATIENT
  Age: 64 Year
  Sex: Male
  Weight: 96 kg

DRUGS (7)
  1. TOPROL-XL [Concomitant]
     Route: 048
  2. TOPROL-XL [Concomitant]
     Route: 048
  3. SOLU-MEDROL [Concomitant]
  4. CRESTOR [Suspect]
     Route: 048
  5. NEXIUM [Concomitant]
     Indication: THROAT IRRITATION
     Route: 048
  6. CRESTOR [Suspect]
     Route: 048
     Dates: end: 20110518
  7. NEXIUM [Concomitant]
     Indication: GASTROOESOPHAGEAL REFLUX DISEASE
     Route: 048

REACTIONS (2)
  - DIABETIC NEPHROPATHY [None]
  - RENAL FAILURE CHRONIC [None]
